FAERS Safety Report 16859509 (Version 1)
Quarter: 2019Q3

REPORT INFORMATION
  Report Type: Spontaneous
  Country: DE (occurrence: DE)
  Receive Date: 20190927
  Receipt Date: 20190927
  Transmission Date: 20191005
  Serious: Yes (Hospitalization)
  Sender: FDA-Public Use
  Company Number: PHHY2019DE221210

PATIENT

DRUGS (5)
  1. CORTISONE ACETATE. [Suspect]
     Active Substance: CORTISONE ACETATE
     Indication: BLOOD ALBUMIN INCREASED
  2. CIPRO 1A PHARMA [Suspect]
     Active Substance: CIPROFLOXACIN\CIPROFLOXACIN HYDROCHLORIDE
     Indication: CYSTITIS
     Dosage: 500 MG, FOR 10 DAYS
     Route: 065
  3. CORTISONE ACETATE. [Suspect]
     Active Substance: CORTISONE ACETATE
     Indication: ALANINE AMINOTRANSFERASE INCREASED
  4. CORTISONE ACETATE. [Suspect]
     Active Substance: CORTISONE ACETATE
     Indication: ASPARTATE AMINOTRANSFERASE INCREASED
     Dosage: UNK MG, UNK
     Route: 065
  5. CORTISONE ACETATE. [Suspect]
     Active Substance: CORTISONE ACETATE
     Indication: GAMMA-GLUTAMYLTRANSFERASE INCREASED

REACTIONS (9)
  - Blood albumin increased [Unknown]
  - Blood iron increased [Unknown]
  - Renal impairment [Unknown]
  - Fatigue [Unknown]
  - Aspartate aminotransferase increased [Unknown]
  - Alanine aminotransferase increased [Unknown]
  - Autoimmune disorder [Unknown]
  - Gamma-glutamyltransferase increased [Unknown]
  - Fluid retention [Unknown]
